FAERS Safety Report 6800888-0 (Version None)
Quarter: 2010Q2

REPORT INFORMATION
  Report Type: 
  Country: None (occurrence: None)
  Receive Date: 20100629
  Receipt Date: 20100615
  Transmission Date: 20101027
  Serious: Yes (Other)
  Sender: FDA-Public Use
  Company Number: PHHY2010CA38793

PATIENT

DRUGS (1)
  1. ALISKIREN ALI+ [Suspect]
     Dosage: 150 MG/DAILY

REACTIONS (1)
  - RENAL FAILURE CHRONIC [None]
